FAERS Safety Report 9229120 (Version 1)
Quarter: 2013Q2

REPORT INFORMATION
  Report Type: Spontaneous
  Country: MY (occurrence: MY)
  Receive Date: 20130412
  Receipt Date: 20130412
  Transmission Date: 20140414
  Serious: Yes (Hospitalization, Other)
  Sender: FDA-Public Use
  Company Number: MY-WATSON-2013-05869

PATIENT
  Age: 24 Year
  Sex: Female

DRUGS (2)
  1. CYCLOSPORINE (UNKNOWN) [Suspect]
     Indication: AUTOIMMUNE HEPATITIS
     Dosage: UNK
     Route: 065
  2. AZATHIOPRINE (UNKNOWN) [Suspect]
     Indication: AUTOIMMUNE HEPATITIS
     Dosage: 175 MG, DAILY
     Route: 065

REACTIONS (1)
  - Acute myeloid leukaemia [Recovering/Resolving]
